FAERS Safety Report 6262267-7 (Version None)
Quarter: 2009Q3

REPORT INFORMATION
  Report Type: 
  Country: None (occurrence: None)
  Receive Date: 20090709
  Receipt Date: 20090702
  Transmission Date: 20100115
  Serious: No
  Sender: FDA-Public Use
  Company Number: US-B.I. PHARMACEUTICALS,INC./RIDGEFIELD-2009-BP-08043BP

PATIENT
  Sex: Female

DRUGS (1)
  1. SPIRIVA [Suspect]
     Indication: EMPHYSEMA
     Dosage: 18 MCG
     Route: 055
     Dates: start: 20090626, end: 20090702

REACTIONS (8)
  - COUGH [None]
  - DYSPHAGIA [None]
  - EAR PAIN [None]
  - GINGIVAL PAIN [None]
  - LOCAL SWELLING [None]
  - OROPHARYNGEAL PAIN [None]
  - POSTNASAL DRIP [None]
  - TONGUE BLISTERING [None]
